FAERS Safety Report 7215487-9 (Version None)
Quarter: 2011Q1

REPORT INFORMATION
  Report Type: 
  Country: None (occurrence: None)
  Receive Date: 20110107
  Receipt Date: 20110103
  Transmission Date: 20110831
  Serious: Yes (Other)
  Sender: FDA-Public Use
  Company Number: A0902496A

PATIENT
  Age: 71 Year
  Sex: Female

DRUGS (6)
  1. DIOVAN [Concomitant]
  2. PREDNISONE [Concomitant]
  3. SPIRIVA [Concomitant]
  4. PROAIR HFA [Concomitant]
  5. ASPIRIN [Concomitant]
  6. VENTOLIN [Suspect]
     Indication: CHRONIC OBSTRUCTIVE PULMONARY DISEASE
     Dosage: 2PUFF PER DAY
     Route: 055
     Dates: start: 20101219, end: 20101220

REACTIONS (4)
  - HEADACHE [None]
  - CHEST PAIN [None]
  - MYOCARDIAL INFARCTION [None]
  - NAUSEA [None]
